FAERS Safety Report 4896290-1 (Version None)
Quarter: 2006Q1

REPORT INFORMATION
  Report Type: 
  Country: None (occurrence: None)
  Receive Date: 20060126
  Receipt Date: 20060111
  Transmission Date: 20060701
  Serious: Yes (Hospitalization)
  Sender: FDA-Public Use
  Company Number: JP-2005-027878

PATIENT
  Age: 57 Year
  Sex: Female
  Weight: 49 kg

DRUGS (10)
  1. BETASERON [Suspect]
     Indication: MULTIPLE SCLEROSIS
     Dosage: SEE IMAGE
     Route: 058
     Dates: start: 20051201, end: 20051205
  2. BETASERON [Suspect]
     Indication: MULTIPLE SCLEROSIS
     Dosage: SEE IMAGE
     Route: 058
     Dates: start: 20051207, end: 20051212
  3. TEGRETOL [Suspect]
     Indication: PRURITUS
     Dosage: 200 MG, 1X/DAY, ORAL
     Route: 048
     Dates: start: 20051124, end: 20051215
  4. LOXONIN (LOXOPROFEN SODIUM) [Concomitant]
  5. LUVOX (FLUVOXAMINE MALEATE) TABLET [Concomitant]
  6. PANTOSIN (PANTETHINE) [Concomitant]
  7. MAGMITT (MAGNESIUM OXIDE) [Concomitant]
  8. UBRETID (DISTIGMINE BROMIDE) TABLET [Concomitant]
  9. MINIPRESS (PRAZOSIN HYDROCHLORIDE) TABLET [Concomitant]
  10. FLUITRAN (TRICHLORMETHIAZIDE) TABLET [Concomitant]

REACTIONS (3)
  - DRUG ERUPTION [None]
  - INJECTION SITE NECROSIS [None]
  - STOMATITIS [None]
